FAERS Safety Report 6431230-5 (Version None)
Quarter: 2009Q4

REPORT INFORMATION
  Report Type: 
  Country: None (occurrence: None)
  Receive Date: 20091106
  Receipt Date: 20091029
  Transmission Date: 20100525
  Serious: Yes (Death, Hospitalization, Disabling, Other)
  Sender: FDA-Public Use
  Company Number: CA-ABBOTT-09P-028-0588695-00

PATIENT
  Sex: Male
  Weight: 79.904 kg

DRUGS (16)
  1. HUMIRA [Suspect]
     Indication: CROHN'S DISEASE
     Route: 058
     Dates: start: 20081217, end: 20090717
  2. CIPROFLOXACIN HCL [Concomitant]
     Indication: INFECTION PROPHYLAXIS
     Dates: start: 20090324, end: 20090422
  3. CIPROFLOXACIN HCL [Concomitant]
     Dosage: TO USE 5 DAYS (FIRST WEEK OF EACH MONTH)
     Dates: start: 20090503, end: 20090509
  4. METRONIDAZOLE [Concomitant]
     Indication: INFECTION PROPHYLAXIS
     Dates: start: 20090324, end: 20090422
  5. METRONIDAZOLE [Concomitant]
     Indication: ANAL ABSCESS
     Dosage: TO USE 5 DAYS (FIRST WEEK OF EACH MONTH)
     Dates: start: 20090503, end: 20090509
  6. METRONIDAZOLE [Concomitant]
     Indication: SCROTAL ABSCESS
     Dates: start: 20090722, end: 20090729
  7. NAPROXEN [Concomitant]
     Indication: BACK PAIN
     Dates: start: 20090622, end: 20090721
  8. PANTOPRAZOLE SODIUM [Concomitant]
     Indication: PROPHYLAXIS AGAINST GASTROINTESTINAL ULCER
     Dates: start: 20090622
  9. AMRIX [Concomitant]
     Indication: BACK PAIN
     Dates: start: 20090622
  10. PURINETHOL [Concomitant]
     Indication: CROHN'S DISEASE
     Dates: start: 20040601, end: 20090814
  11. PALAFER [Concomitant]
     Indication: IRON DEFICIENCY ANAEMIA
     Dates: start: 20040701
  12. DILAUDID [Concomitant]
     Indication: POSTOPERATIVE ANALGESIA
     Dates: start: 20090721
  13. DILAUDID [Concomitant]
     Indication: ABSCESS DRAINAGE
  14. OXYCODONE [Concomitant]
     Indication: METASTASIS
     Dates: start: 20090721
  15. OXYCODONE [Concomitant]
     Indication: POSTOPERATIVE ANALGESIA
  16. GRAVOL TAB [Concomitant]
     Indication: NAUSEA
     Dates: start: 20090721

REACTIONS (3)
  - ANAL ABSCESS [None]
  - LYMPHOMA [None]
  - SCROTAL ABSCESS [None]
